FAERS Safety Report 8482625-X (Version None)
Quarter: 2012Q3

REPORT INFORMATION
  Report Type: 
  Country: None (occurrence: None)
  Receive Date: 20120702
  Receipt Date: 20120628
  Transmission Date: 20120928
  Serious: Yes (Other)
  Sender: FDA-Public Use
  Company Number: US-MERCK-1206USA04999

PATIENT
  Age: 87 Year
  Sex: Female

DRUGS (1)
  1. FOSAMAX [Suspect]
     Route: 048
     Dates: start: 19720101

REACTIONS (4)
  - BACK DISORDER [None]
  - OSTEOPOROSIS [None]
  - PAIN [None]
  - OSTEOARTHRITIS [None]
